FAERS Safety Report 7429064-8 (Version None)
Quarter: 2011Q2

REPORT INFORMATION
  Report Type: 
  Country: None (occurrence: None)
  Receive Date: 20110421
  Receipt Date: 20110415
  Transmission Date: 20111010
  Serious: Yes (Other)
  Sender: FDA-Public Use
  Company Number: LT-ROCHE-770842

PATIENT
  Age: 69 Year
  Sex: Female

DRUGS (1)
  1. BONIVA [Suspect]
     Indication: OSTEOPOROSIS
     Dosage: FREQUENCY: FIRST TIME
     Route: 042
     Dates: start: 20110406, end: 20110406

REACTIONS (4)
  - DIARRHOEA [None]
  - ASTHENIA [None]
  - NOCTURIA [None]
  - PAIN [None]
